FAERS Safety Report 9320942 (Version 2)
Quarter: 2013Q2

REPORT INFORMATION
  Report Type: Spontaneous
  Country: CA (occurrence: CA)
  Receive Date: 20130531
  Receipt Date: 20130611
  Transmission Date: 20140414
  Serious: Yes (Other)
  Sender: FDA-Public Use
  Company Number: CA-AMGEN-CANSP2013038101

PATIENT
  Age: 22 Year
  Sex: Male
  Weight: 67 kg

DRUGS (2)
  1. NPLATE [Suspect]
     Indication: IDIOPATHIC THROMBOCYTOPENIC PURPURA
     Dosage: 78 ML, UNK
     Dates: start: 20130430
  2. NPLATE [Suspect]
     Dosage: 0.91 ML, UNK
     Dates: start: 20130604

REACTIONS (1)
  - Platelet count decreased [Not Recovered/Not Resolved]
